FAERS Safety Report 9176928 (Version 2)
Quarter: 2013Q2

REPORT INFORMATION
  Report Type: Spontaneous
  Country: US (occurrence: US)
  Receive Date: 20130321
  Receipt Date: 20130404
  Transmission Date: 20140414
  Serious: Yes (Death)
  Sender: FDA-Public Use
  Company Number: US-JNJFOC-20130308648

PATIENT
  Sex: 0

DRUGS (3)
  1. DOXORUBICIN [Suspect]
     Indication: SARCOMA
     Dosage: 48 HR INFUSION ON DAY 1 OF A 21-DAY CYCLE
     Route: 042
  2. DOXORUBICIN [Suspect]
     Indication: SARCOMA
     Dosage: 48 HR INFUSION ON DAY 1 OF A 21-DAY CYCLE
     Route: 041
  3. CIXUTUMUMAB [Suspect]
     Indication: SARCOMA
     Dosage: 1, 3 OR 6 MG/KG; ADMINISTERED OVER 60 MIN ON DAY 1, 8, 15 OF A 21 DAY CYCLE
     Route: 042

REACTIONS (2)
  - Death [Fatal]
  - Off label use [Unknown]
